FAERS Safety Report 19587510 (Version 1)
Quarter: 2021Q3

REPORT INFORMATION
  Report Type: Spontaneous
  Country: US (occurrence: US)
  Receive Date: 20210721
  Receipt Date: 20210721
  Transmission Date: 20211014
  Serious: Yes (Death)
  Sender: FDA-Public Use
  Company Number: None

PATIENT
  Age: 31 Year
  Sex: Male
  Weight: 76.5 kg

DRUGS (4)
  1. VITAMIN D3 [Concomitant]
     Active Substance: CHOLECALCIFEROL
  2. LUNESTA [Concomitant]
     Active Substance: ESZOPICLONE
  3. MODAFINIL. [Concomitant]
     Active Substance: MODAFINIL
  4. KRATOM [Suspect]
     Active Substance: HERBALS\MITRAGYNINE
     Indication: NARCOLEPSY

REACTIONS (3)
  - Respiratory depression [None]
  - Product use issue [None]
  - Herbal toxicity [None]
